FAERS Safety Report 4423563-9 (Version None)
Quarter: 2004Q3

REPORT INFORMATION
  Report Type: 
  Country: None (occurrence: None)
  Receive Date: 20040805
  Receipt Date: 20040723
  Transmission Date: 20050211
  Serious: Yes (Hospitalization)
  Sender: FDA-Public Use
  Company Number: GB-JNJFOC-20040706509

PATIENT
  Age: 72 Year
  Sex: Female

DRUGS (9)
  1. REMICADE [Suspect]
     Indication: RHEUMATOID ARTHRITIS
     Dosage: 250 MG, INTRAVENOUS
     Route: 042
     Dates: start: 20030114, end: 20030601
  2. CO-PROXAMOL (APOREX) [Concomitant]
  3. NIFEDIPINE [Concomitant]
  4. CELEBREX [Concomitant]
  5. PREDNISOLONE [Concomitant]
  6. AMITRIPTYLINE HCL [Concomitant]
  7. BECOTIDE (BECLOMETASONE DIPROPIONATE) [Concomitant]
  8. ZESTORETIC [Concomitant]
  9. VENTOLIN [Concomitant]

REACTIONS (2)
  - ASTHMA [None]
  - LOWER RESPIRATORY TRACT INFECTION [None]
